FAERS Safety Report 10149307 (Version 2)
Quarter: 2014Q4

REPORT INFORMATION
  Report Type: Spontaneous
  Country: US (occurrence: None)
  Receive Date: 20140430
  Receipt Date: 20141118
  Transmission Date: 20150528
  Serious: Yes (Life-Threatening, Hospitalization)
  Sender: FDA-Public Use
  Company Number: 1713747-2014-99953

PATIENT
  Age: 63 Year
  Sex: Female
  Weight: 78.9 kg

DRUGS (21)
  1. ASPIRIN. [Concomitant]
     Active Substance: ASPIRIN
  2. VITAMIN C [Concomitant]
     Active Substance: ASCORBIC ACID
  3. MIRTAZAPINE. [Concomitant]
     Active Substance: MIRTAZAPINE
  4. PREDNISONE. [Concomitant]
     Active Substance: PREDNISONE
  5. PORTONIX [Concomitant]
  6. OPTIFLUX DIALYZER [Concomitant]
  7. AMIODARONE [Concomitant]
     Active Substance: AMIODARONE
  8. SODIUM THIOSULFATE [Concomitant]
     Active Substance: SODIUM THIOSULFATE
  9. BENTYL [Concomitant]
     Active Substance: DICYCLOMINE HYDROCHLORIDE
  10. 0.9% NORMAL SALINE SOLUTION [Suspect]
     Active Substance: SODIUM CHLORIDE
     Indication: CHRONIC KIDNEY DISEASE
     Dosage: HEMODIALYSIS
     Dates: start: 20140408
  11. VANCOMYCIN [Concomitant]
     Active Substance: VANCOMYCIN
  12. SENNA [Concomitant]
     Active Substance: SENNA LEAF\SENNOSIDES\SENNOSIDES A AND B
  13. FRESENIUS  BONDED COMBISET [Concomitant]
  14. 2008K DIALYSIS MACHINE [Concomitant]
  15. EPOGEN [Concomitant]
     Active Substance: ERYTHROPOIETIN
  16. PROCHLORPERAZINE. [Concomitant]
     Active Substance: PROCHLORPERAZINE
  17. RENVELA [Concomitant]
     Active Substance: SEVELAMER CARBONATE
  18. NATURALYTE [Concomitant]
     Active Substance: ACETIC ACID\SODIUM ACETATE
  19. SODIUM THISULFATE [Concomitant]
  20. ACIDOPHILUS [Concomitant]
     Active Substance: LACTOBACILLUS ACIDOPHILUS
  21. METROPROLOL TARTRATE [Concomitant]
     Active Substance: METOPROLOL TARTRATE

REACTIONS (5)
  - Cardio-respiratory arrest [None]
  - Seizure [None]
  - Drug effect decreased [None]
  - Product quality issue [None]
  - Unresponsive to stimuli [None]

NARRATIVE: CASE EVENT DATE: 20140408
